FAERS Safety Report 5388450-0 (Version None)
Quarter: 2007Q3

REPORT INFORMATION
  Report Type: 
  Country: None (occurrence: None)
  Receive Date: 20070711
  Receipt Date: 20070627
  Transmission Date: 20080115
  Serious: Yes (Hospitalization)
  Sender: FDA-Public Use
  Company Number: 16912

PATIENT
  Age: 52 Year
  Sex: Female
  Weight: 46 kg

DRUGS (5)
  1. NIPENT [Suspect]
     Indication: CHRONIC LYMPHOCYTIC LEUKAEMIA
     Dosage: 6 MG PER _ CYCLE IV
     Route: 042
     Dates: start: 20070215, end: 20070415
  2. ENDOXAN. MFR: NOT SPECIFIED [Suspect]
     Indication: CHRONIC LYMPHOCYTIC LEUKAEMIA
     Dosage: 910 MG PER_ CYCLE IV
     Route: 042
     Dates: start: 20070215, end: 20070415
  3. MABTHERA.  MFR: NOT SPECIFIED [Suspect]
     Indication: CHRONIC LYMPHOCYTIC LEUKAEMIA
     Dosage: 570 MG PER_CYCLE IV
     Route: 042
     Dates: start: 20070215, end: 20070415
  4. BACTRIM [Concomitant]
  5. SELITREX [Concomitant]

REACTIONS (2)
  - BRONCHITIS [None]
  - INTERSTITIAL LUNG DISEASE [None]
